FAERS Safety Report 6187257-4 (Version None)
Quarter: 2009Q2

REPORT INFORMATION
  Report Type: 
  Country: None (occurrence: None)
  Receive Date: 20090512
  Receipt Date: 20090508
  Transmission Date: 20091009
  Serious: Yes (Hospitalization, Other)
  Sender: FDA-Public Use
  Company Number: GB-BAYER-200910636BNE

PATIENT

DRUGS (1)
  1. MABCAMPATH [Suspect]
     Indication: TRANSPLANT

REACTIONS (1)
  - TRANSPLANT REJECTION [None]
